FAERS Safety Report 5081268-8 (Version None)
Quarter: 2006Q3

REPORT INFORMATION
  Report Type: 
  Country: None (occurrence: None)
  Receive Date: 20060816
  Receipt Date: 20060728
  Transmission Date: 20061208
  Serious: Yes (Hospitalization)
  Sender: FDA-Public Use
  Company Number: PHRM2006FR02219

PATIENT
  Age: 56 Year
  Sex: Female
  Weight: 63 kg

DRUGS (3)
  1. MIACALCIN [Suspect]
     Indication: COMPLEX REGIONAL PAIN SYNDROME
     Dosage: 1 DF, UNK
     Route: 030
     Dates: start: 20060430, end: 20060508
  2. ESOMEPRAZOLE MAGNESIUM [Suspect]
     Indication: HIATUS HERNIA
     Dosage: 1 DF, UNK
     Route: 048
     Dates: start: 20060409
  3. EUTHYRAL [Suspect]
     Indication: HYPOTHYROIDISM
     Dosage: 0.5 DF, UNK
     Route: 048

REACTIONS (1)
  - INTESTINAL ISCHAEMIA [None]
